FAERS Safety Report 8804617 (Version 2)
Quarter: 2012Q4

REPORT INFORMATION
  Report Type: 
  Country: CN (occurrence: CN)
  Receive Date: 20120924
  Receipt Date: 20121210
  Transmission Date: 20130627
  Serious: Yes (Hospitalization)
  Sender: FDA-Public Use
  Company Number: CN-ABBOTT-12P-035-0985429-00

PATIENT
  Age: 50 Year
  Sex: Male

DRUGS (3)
  1. DEPAKINE CHRONO [Suspect]
     Indication: EPILEPSY
     Dosage: Sustained release
     Route: 048
     Dates: start: 201107, end: 201208
  2. DEPAKINE CHRONO [Suspect]
     Route: 048
     Dates: start: 201208, end: 20120830
  3. DEPAKINE CHRONO [Suspect]
     Dosage: 2 TABLETS IN MORNING AND 1 TABLET IN EVENING

REACTIONS (4)
  - Eye movement disorder [Unknown]
  - Trismus [Unknown]
  - Epilepsy [Recovered/Resolved]
  - Convulsion [Unknown]
